FAERS Safety Report 4309532-8 (Version None)
Quarter: 2004Q1

REPORT INFORMATION
  Report Type: 
  Country: None (occurrence: None)
  Receive Date: 20040301
  Receipt Date: 20040219
  Transmission Date: 20041129
  Serious: Yes (Hospitalization, Other)
  Sender: FDA-Public Use
  Company Number: CH-JNJFOC-20040204305

PATIENT
  Age: 30 Year
  Sex: Male

DRUGS (4)
  1. TRAMAL RETARD (TRAMADOL HYDROCHLORIDE) UNSPECIFIED [Suspect]
     Indication: ARTHRALGIA
     Dosage: 600 MG, 3 IN 1 WEEK, ORAL
     Route: 048
  2. TIENAM (TIENAM) [Suspect]
     Indication: BACTERIAL INFECTION
     Dosage: INTRAVENOUS
     Route: 042
     Dates: start: 20031227, end: 20040115
  3. ACETAMINOPHEN [Concomitant]
  4. VOLTAREN [Concomitant]

REACTIONS (19)
  - AGITATION [None]
  - AMNESIA [None]
  - ARTHRITIS [None]
  - BODY TEMPERATURE INCREASED [None]
  - C-REACTIVE PROTEIN INCREASED [None]
  - CIRCUMSTANTIALITY [None]
  - DRUG ABUSER [None]
  - GRAND MAL CONVULSION [None]
  - HYPERHIDROSIS [None]
  - HYPOCHROMIC ANAEMIA [None]
  - JOINT RANGE OF MOTION DECREASED [None]
  - LEUKOCYTOSIS [None]
  - MALAISE [None]
  - PERIPHERAL COLDNESS [None]
  - PROTHROMBIN TIME PROLONGED [None]
  - ROAD TRAFFIC ACCIDENT [None]
  - THROMBOCYTHAEMIA [None]
  - TOXICOLOGIC TEST ABNORMAL [None]
  - TREMOR [None]
